FAERS Safety Report 4785992-3 (Version None)
Quarter: 2005Q3

REPORT INFORMATION
  Report Type: 
  Country: None (occurrence: None)
  Receive Date: 20050930
  Receipt Date: 20050930
  Transmission Date: 20060218
  Serious: Yes (Life-Threatening)
  Sender: FDA-Public Use
  Company Number: None

PATIENT
  Sex: Female
  Weight: 37.6486 kg

DRUGS (1)
  1. STRATTERA [Suspect]
     Dosage: ONE ONCE
     Dates: start: 20040826, end: 20050226

REACTIONS (1)
  - SUICIDAL IDEATION [None]
